FAERS Safety Report 24030601 (Version 2)
Quarter: 2024Q3

REPORT INFORMATION
  Report Type: Spontaneous
  Country: US (occurrence: US)
  Receive Date: 20240628
  Receipt Date: 20240710
  Transmission Date: 20241017
  Serious: No
  Sender: BIOGEN
  Company Number: US-BIOGEN-2024BI01271496

PATIENT
  Sex: Female

DRUGS (9)
  1. TECFIDERA [Suspect]
     Active Substance: DIMETHYL FUMARATE
     Indication: Multiple sclerosis
     Route: 050
  2. CALCIUM [Concomitant]
     Active Substance: CALCIUM
     Route: 050
  3. ESTARYLLA [Concomitant]
     Active Substance: ETHINYL ESTRADIOL\NORGESTIMATE
     Route: 050
  4. MAGNESIUM [Concomitant]
     Active Substance: MAGNESIUM
     Route: 050
  5. OMEGA 3 [Concomitant]
     Active Substance: CAPSAICIN
     Route: 050
  6. VITAMIN B12 [Concomitant]
     Active Substance: CYANOCOBALAMIN
     Route: 050
  7. VITAMIN C [Concomitant]
     Active Substance: ASCORBIC ACID
     Route: 050
  8. ZINC [Concomitant]
     Active Substance: ZINC
     Route: 050
  9. ZYRTEC [Concomitant]
     Active Substance: CETIRIZINE HYDROCHLORIDE
     Route: 050

REACTIONS (1)
  - Gastrointestinal disorder [Unknown]
